FAERS Safety Report 19507319 (Version 1)
Quarter: 2021Q3

REPORT INFORMATION
  Report Type: Spontaneous
  Country: NL (occurrence: NL)
  Receive Date: 20210708
  Receipt Date: 20210708
  Transmission Date: 20211014
  Serious: Yes (Other)
  Sender: FDA-Public Use
  Company Number: NL-MYLANLABS-2021M1038801

PATIENT
  Age: 58 Year
  Sex: Female

DRUGS (10)
  1. AMPHOTERICIN B. [Concomitant]
     Active Substance: AMPHOTERICIN B
     Indication: ANTIFUNGAL PROPHYLAXIS
     Dosage: UNK
     Route: 048
  2. CYTARABINE. [Suspect]
     Active Substance: CYTARABINE
     Indication: CHEMOTHERAPY
  3. IDARUBICIN [Suspect]
     Active Substance: IDARUBICIN
     Indication: CHEMOTHERAPY
  4. IDARUBICIN [Suspect]
     Active Substance: IDARUBICIN
     Indication: ACUTE MYELOID LEUKAEMIA
  5. CLOFARABINE. [Suspect]
     Active Substance: CLOFARABINE
     Indication: CHEMOTHERAPY
  6. CLOFARABINE. [Suspect]
     Active Substance: CLOFARABINE
     Indication: ACUTE MYELOID LEUKAEMIA
     Dosage: UNK
  7. VALACICLOVIR [Concomitant]
     Active Substance: VALACYCLOVIR HYDROCHLORIDE
     Indication: ANTIVIRAL PROPHYLAXIS
  8. TRIMETHOPRIM SULFAMETHOXAZOLE [Concomitant]
     Active Substance: SULFAMETHOXAZOLE\TRIMETHOPRIM
     Indication: ANTIBIOTIC PROPHYLAXIS
     Dosage: UNK
  9. CYTARABINE. [Suspect]
     Active Substance: CYTARABINE
     Indication: ACUTE MYELOID LEUKAEMIA
  10. CIPROFLOXACIN. [Concomitant]
     Active Substance: CIPROFLOXACIN
     Indication: ANTIBIOTIC PROPHYLAXIS
     Dosage: UNK

REACTIONS (8)
  - Febrile neutropenia [Unknown]
  - Product administered to patient of inappropriate age [Unknown]
  - Fungaemia [Recovered/Resolved]
  - Intentional product misuse [Unknown]
  - Neutropenic colitis [Unknown]
  - Cell-mediated immune deficiency [Unknown]
  - Abdominal pain [Unknown]
  - Off label use [Unknown]
